FAERS Safety Report 11186180 (Version 1)
Quarter: 2015Q2

REPORT INFORMATION
  Report Type: Spontaneous
  Country: BR (occurrence: BR)
  Receive Date: 20150612
  Receipt Date: 20150612
  Transmission Date: 20150821
  Serious: Yes (Other)
  Sender: FDA-Public Use
  Company Number: BR-ELI_LILLY_AND_COMPANY-BR201506000669

PATIENT
  Sex: Male
  Weight: 57 kg

DRUGS (1)
  1. HUMULIN N [Suspect]
     Active Substance: INSULIN HUMAN
     Indication: DIABETES MELLITUS
     Dosage: UNK, QD
     Route: 058
     Dates: start: 1979

REACTIONS (2)
  - Injection site injury [Not Recovered/Not Resolved]
  - Renal disorder [Recovering/Resolving]

NARRATIVE: CASE EVENT DATE: 2008
